FAERS Safety Report 9299414 (Version 1)
Quarter: 2013Q2

REPORT INFORMATION
  Report Type: Spontaneous
  Country: US (occurrence: US)
  Receive Date: 20130520
  Receipt Date: 20130520
  Transmission Date: 20140414
  Serious: Yes (Other)
  Sender: FDA-Public Use
  Company Number: US-009507513-1305USA010486

PATIENT
  Age: 24 Year
  Sex: Male

DRUGS (1)
  1. SINGULAIR [Suspect]
     Indication: HYPERSENSITIVITY
     Dosage: DAILY, PRN

REACTIONS (6)
  - Abnormal dreams [Unknown]
  - Confusional state [Unknown]
  - Visual impairment [Unknown]
  - Hallucination [Unknown]
  - Drug interaction [Unknown]
  - Anxiety [Unknown]
